FAERS Safety Report 20087964 (Version 1)
Quarter: 2021Q4

REPORT INFORMATION
  Report Type: Spontaneous
  Country: US (occurrence: US)
  Receive Date: 20211118
  Receipt Date: 20211118
  Transmission Date: 20220303
  Serious: Yes (Life-Threatening)
  Sender: FDA-Public Use
  Company Number: US-PURDUE PHARMA-USA-2021-0283708

PATIENT

DRUGS (1)
  1. BETADINE [Suspect]
     Active Substance: POVIDONE-IODINE
     Indication: Product used for unknown indication
     Dosage: UNK UNK, SINGLE
     Route: 061
     Dates: start: 20210326, end: 20210326

REACTIONS (5)
  - Adverse drug reaction [Unknown]
  - Vulvovaginal swelling [Unknown]
  - Swelling face [Unknown]
  - Swelling [Unknown]
  - Swollen tongue [Unknown]
